FAERS Safety Report 6872272-5 (Version None)
Quarter: 2010Q3

REPORT INFORMATION
  Report Type: 
  Country: None (occurrence: None)
  Receive Date: 20100723
  Receipt Date: 20100712
  Transmission Date: 20110219
  Serious: Yes (Life-Threatening)
  Sender: FDA-Public Use
  Company Number: BR-ROCHE-714894

PATIENT
  Sex: Male
  Weight: 83 kg

DRUGS (5)
  1. TOCILIZUMAB [Suspect]
     Dosage: FORM: INFUSION, TOTAL OF 3 INFUSIONS
     Route: 042
     Dates: start: 20100402, end: 20100604
  2. METHOTREXATE [Concomitant]
     Dosage: FREQ: 8 TAB/WEEK
     Dates: start: 20080901
  3. FOLIN [Concomitant]
  4. ALPRAZOLAM [Concomitant]
  5. WARFARIN SODIUM [Concomitant]

REACTIONS (7)
  - ALANINE AMINOTRANSFERASE INCREASED [None]
  - ASPARTATE AMINOTRANSFERASE INCREASED [None]
  - DRUG INEFFECTIVE [None]
  - JOINT SWELLING [None]
  - MYALGIA [None]
  - PULMONARY EMBOLISM [None]
  - TENDON PAIN [None]
